FAERS Safety Report 16597424 (Version 1)
Quarter: 2019Q3

REPORT INFORMATION
  Report Type: Spontaneous
  Country: US (occurrence: US)
  Receive Date: 20190719
  Receipt Date: 20190719
  Transmission Date: 20191004
  Serious: No
  Sender: FDA-Public Use
  Company Number: US-PFIZER INC-2019308977

PATIENT
  Age: 72 Year
  Sex: Male
  Weight: 90.7 kg

DRUGS (1)
  1. DILANTIN [Suspect]
     Active Substance: PHENYTOIN
     Indication: SEIZURE
     Dosage: UNK, 1X/DAY

REACTIONS (2)
  - Dysarthria [Unknown]
  - Sluggishness [Unknown]
